FAERS Safety Report 9178722 (Version 1)
Quarter: 2013Q1

REPORT INFORMATION
  Report Type: Spontaneous
  Country: SE (occurrence: SE)
  Receive Date: 20130321
  Receipt Date: 20130321
  Transmission Date: 20140127
  Serious: Yes (Other)
  Sender: FDA-Public Use
  Company Number: SE-009507513-1303SWE007670

PATIENT
  Age: 51 Year
  Sex: Female

DRUGS (2)
  1. NASONEX [Suspect]
     Dosage: UNK, QD
     Route: 045
  2. DOXYFERM [Concomitant]

REACTIONS (1)
  - Ageusia [Not Recovered/Not Resolved]
